FAERS Safety Report 6012614-6 (Version None)
Quarter: 2008Q4

REPORT INFORMATION
  Report Type: 
  Country: None (occurrence: None)
  Receive Date: 20081218
  Receipt Date: 20081211
  Transmission Date: 20090506
  Serious: Yes (Other)
  Sender: FDA-Public Use
  Company Number: GT-ABBOTT-08P-069-0490481-00

PATIENT
  Sex: Female

DRUGS (5)
  1. HUMIRA [Suspect]
     Indication: RHEUMATOID ARTHRITIS
     Route: 058
     Dates: start: 20080601
  2. METHOTREXATE [Concomitant]
     Indication: RHEUMATOID ARTHRITIS
     Route: 048
     Dates: start: 19900101
  3. FOLIC ACID [Concomitant]
     Indication: FOLATE DEFICIENCY
  4. ESTRADIOL [Concomitant]
     Indication: HORMONE THERAPY
     Route: 048
  5. ARTHROSAMINE [Concomitant]
     Indication: RHEUMATOID ARTHRITIS

REACTIONS (5)
  - DIZZINESS [None]
  - EAR PAIN [None]
  - HYPERTENSION [None]
  - TINNITUS [None]
  - VOMITING [None]
